FAERS Safety Report 16094318 (Version 1)
Quarter: 2019Q1

REPORT INFORMATION
  Report Type: Report from Study
  Country: FR (occurrence: FR)
  Receive Date: 20190320
  Receipt Date: 20190320
  Transmission Date: 20190418
  Serious: Yes (Other)
  Sender: FDA-Public Use
  Company Number: FR-ROCHE-2285037

PATIENT
  Age: 77 Year
  Sex: Female

DRUGS (9)
  1. BEVACIZUMAB. [Suspect]
     Active Substance: BEVACIZUMAB
     Indication: OVARIAN CANCER
     Dosage: D1 + 15
     Route: 042
     Dates: start: 20180109, end: 20190128
  2. BEVACIZUMAB. [Suspect]
     Active Substance: BEVACIZUMAB
     Dosage: MAINTENANCE DOSE
     Route: 042
     Dates: start: 20190211
  3. PEGYLATED LIPOSOMAL DOXORUBICIN [Suspect]
     Active Substance: DOXORUBICIN
     Indication: OVARIAN CANCER
     Dosage: ON DAY 1; ON 28/MAY/2018, SHE RECEIVED THE LAST DOSE OF PEGYLATED LIPOSOMAL DOXORUBICIN BEFORE THE S
     Route: 042
     Dates: start: 20180109
  4. ORACILLIN [Concomitant]
  5. INEGY [Concomitant]
     Active Substance: EZETIMIBE\SIMVASTATIN
  6. BLINDED ATEZOLIZUMAB [Suspect]
     Active Substance: ATEZOLIZUMAB
     Dosage: MAINTAINENCE DOSE
     Route: 042
  7. CARBOPLATIN. [Suspect]
     Active Substance: CARBOPLATIN
     Indication: OVARIAN CANCER
     Dosage: AUC = 5 ON DAY 1; ON 28/MAY/2018, SHE RECEIVED LAST DOSE OF CARBOPLATIN BEFORE THE SERIOUS ADVERSE E
     Route: 042
     Dates: start: 20180109
  8. ATACAND [Concomitant]
     Active Substance: CANDESARTAN CILEXETIL
  9. BLINDED ATEZOLIZUMAB [Suspect]
     Active Substance: ATEZOLIZUMAB
     Indication: OVARIAN CANCER
     Dosage: ON 07/JAN/2019, SHE RECEIVED LAST DOSE OF ATEZOLIZUMAB BEFORE THE SERIOUS ADVERSE EVENT.
     Route: 042
     Dates: start: 20180109, end: 20190107

REACTIONS (1)
  - Myositis [Not Recovered/Not Resolved]

NARRATIVE: CASE EVENT DATE: 20190125
